FAERS Safety Report 11592980 (Version 4)
Quarter: 2015Q4

REPORT INFORMATION
  Report Type: Spontaneous
  Country: US (occurrence: US)
  Receive Date: 20151005
  Receipt Date: 20151111
  Transmission Date: 20160304
  Serious: No
  Sender: FDA-Public Use
  Company Number: US-LEO PHARMA-237216

PATIENT
  Sex: Female

DRUGS (1)
  1. PICATO [Suspect]
     Active Substance: INGENOL MEBUTATE
     Indication: ACTINIC KERATOSIS
     Dosage: 1 TUBE ONLY
     Route: 061
     Dates: start: 20150908, end: 20150908

REACTIONS (7)
  - Incorrect drug administration duration [Unknown]
  - Insomnia [Recovered/Resolved]
  - Application site scar [Recovered/Resolved]
  - Burns second degree [Recovered/Resolved]
  - Incorrect dose administered [Unknown]
  - Application site dryness [Recovered/Resolved]
  - Application site pruritus [Recovered/Resolved]

NARRATIVE: CASE EVENT DATE: 20150908
